FAERS Safety Report 21838424 (Version 1)
Quarter: 2023Q1

REPORT INFORMATION
  Report Type: Spontaneous
  Country: US (occurrence: None)
  Receive Date: 20230105
  Receipt Date: 20230105
  Transmission Date: 20230418
  Serious: Yes (Hospitalization)
  Sender: FDA-Public Use
  Company Number: None

PATIENT
  Age: 70 Year
  Sex: Female

DRUGS (22)
  1. AMBRISENTAN [Suspect]
     Active Substance: AMBRISENTAN
     Indication: Pulmonary hypertension
     Dosage: FREQUENCY : DAILY;?
     Route: 048
     Dates: start: 20140121
  2. TADALAFIL [Concomitant]
     Active Substance: TADALAFIL
  3. LORAZEPAM [Concomitant]
     Active Substance: LORAZEPAM
  4. PERCOCET [Concomitant]
     Active Substance: ACETAMINOPHEN\OXYCODONE HYDROCHLORIDE
  5. ATORVASTATIN [Concomitant]
     Active Substance: ATORVASTATIN
  6. FLONASE [Concomitant]
     Active Substance: FLUTICASONE PROPIONATE
  7. ARICEPT [Concomitant]
     Active Substance: DONEPEZIL HYDROCHLORIDE
  8. LEVOTHYROXINE [Concomitant]
     Active Substance: LEVOTHYROXINE
  9. PANTOPRAZOLE [Concomitant]
     Active Substance: PANTOPRAZOLE
  10. AMLODIPINE [Concomitant]
     Active Substance: AMLODIPINE BESYLATE
  11. ATENOLOL [Concomitant]
     Active Substance: ATENOLOL
  12. GABAPENTIN [Concomitant]
     Active Substance: GABAPENTIN
  13. MONTELUKAST [Concomitant]
     Active Substance: MONTELUKAST SODIUM
  14. FOLIC ACID [Concomitant]
     Active Substance: FOLIC ACID
  15. BUSPAR [Concomitant]
     Active Substance: BUSPIRONE HYDROCHLORIDE
  16. MOBIC [Concomitant]
     Active Substance: MELOXICAM
  17. DULOXETINE [Concomitant]
     Active Substance: DULOXETINE
  18. TYLENOL [Concomitant]
     Active Substance: ACETAMINOPHEN
  19. VITAMINS [Concomitant]
     Active Substance: VITAMINS
  20. BIOTIN [Concomitant]
     Active Substance: BIOTIN
  21. ASPIRIN [Concomitant]
     Active Substance: ASPIRIN
  22. FISH OIL [Concomitant]
     Active Substance: FISH OIL

REACTIONS (2)
  - Intentional overdose [None]
  - Hypertransaminasaemia [None]

NARRATIVE: CASE EVENT DATE: 20221201
